FAERS Safety Report 8495835-2 (Version None)
Quarter: 2012Q3

REPORT INFORMATION
  Report Type: 
  Country: None (occurrence: None)
  Receive Date: 20120709
  Receipt Date: 20120705
  Transmission Date: 20120928
  Serious: Yes (Other)
  Sender: FDA-Public Use
  Company Number: PHEH2012US013277

PATIENT
  Sex: Female

DRUGS (9)
  1. GLIMEPIRIDE [Concomitant]
     Indication: DIABETES MELLITUS
     Dosage: 4 MG, BID
     Route: 048
  2. ZETIA [Concomitant]
     Indication: HYPERTENSION
     Dosage: 20 MG, QD
     Route: 048
  3. CYCLOBENZAPRINE [Concomitant]
     Indication: MUSCLE RELAXANT THERAPY
     Dosage: 10 MG, QD
     Route: 048
  4. DIOVAN [Suspect]
     Indication: HYPERTENSION
     Dosage: 160 MG, QD
     Route: 048
     Dates: end: 20120627
  5. METFORMIN HCL [Concomitant]
     Indication: DIABETES MELLITUS
     Dosage: 850 MG, BID
     Route: 048
  6. RANITIDINE [Concomitant]
     Dosage: 150 MG, QD
     Route: 048
  7. HYDROCODONE [Concomitant]
     Indication: PAIN
     Dosage: 325 MG, AS NEDED
     Route: 048
  8. LASIX [Concomitant]
     Indication: SWELLING
     Dosage: 40 MG, QD
     Route: 048
  9. SIMVASTATIN [Concomitant]
     Indication: BLOOD CHOLESTEROL ABNORMAL
     Dosage: 20 MG, QD
     Route: 048

REACTIONS (5)
  - DIZZINESS [None]
  - FALL [None]
  - WRONG TECHNIQUE IN DRUG USAGE PROCESS [None]
  - SYNCOPE [None]
  - JOINT SWELLING [None]
